FAERS Safety Report 17562992 (Version 2)
Quarter: 2020Q2

REPORT INFORMATION
  Report Type: Other
  Country: US (occurrence: US)
  Receive Date: 20200319
  Receipt Date: 20200413
  Transmission Date: 20200713
  Serious: Yes (Other)
  Sender: FDA-Public Use
  Company Number: US-BECTON DICKINSON-2020BDN00082

PATIENT

DRUGS (5)
  1. CHLORAPREP [Suspect]
     Active Substance: CHLORHEXIDINE GLUCONATE\ISOPROPYL ALCOHOL
     Indication: INFECTION PROPHYLAXIS
     Dosage: UNK
     Route: 061
     Dates: start: 20191226, end: 20191226
  2. BIOPATCH DRESSING W/CHG [Suspect]
     Active Substance: CHLORHEXIDINE GLUCONATE
     Dosage: 1^ DISK, 4 MM OPENING
     Dates: start: 20191226
  3. POWERPICC PROVENA SOLO 5F DL FW MAX BARRIER PLUS [Suspect]
     Active Substance: DEVICE
  4. CHLORAPREP WITH TINT [Suspect]
     Active Substance: CHLORHEXIDINE GLUCONATE\ISOPROPYL ALCOHOL
     Indication: INFECTION PROPHYLAXIS
     Dosage: UNK
     Route: 061
     Dates: start: 20191226, end: 20191226
  5. LIDOCAINE. [Suspect]
     Active Substance: LIDOCAINE
     Dosage: 5 ML
     Dates: start: 20191226

REACTIONS (3)
  - Complication of device insertion [Recovered/Resolved]
  - Foreign body [Recovered/Resolved]
  - Device physical property issue [Recovered/Resolved]

NARRATIVE: CASE EVENT DATE: 20191226
